FAERS Safety Report 8197889 (Version 2)
Quarter: 2013Q1

REPORT INFORMATION
  Report Type: Report from Study
  Country: CH (occurrence: CH)
  Receive Date: 20111025
  Receipt Date: 20130219
  Transmission Date: 20140127
  Serious: Yes (Hospitalization)
  Sender: FDA-Public Use
  Company Number: CH-JNJFOC-20111005561

PATIENT
  Age: 78 Year
  Sex: Male
  Weight: 121 kg

DRUGS (10)
  1. ABIRATERONE [Suspect]
     Route: 048
  2. ABIRATERONE [Suspect]
     Indication: PROSTATE CANCER METASTATIC
     Route: 048
     Dates: start: 20110203
  3. METOZEROK [Concomitant]
     Indication: ESSENTIAL HYPERTENSION
     Route: 048
  4. FURSOL [Concomitant]
     Indication: OEDEMA
     Route: 048
  5. INSPRA [Concomitant]
     Indication: PRODUCT USED FOR UNKNOWN INDICATION
     Route: 048
  6. KCL RETARD ZYMA [Concomitant]
     Indication: PRODUCT USED FOR UNKNOWN INDICATION
     Route: 048
     Dates: start: 20110303
  7. CITALOPRAM [Concomitant]
     Indication: DEPRESSION
     Route: 048
     Dates: start: 20110902
  8. CITALOPRAM [Concomitant]
     Indication: BIPOLAR DISORDER
     Route: 048
     Dates: start: 20110902
  9. ZALDIAR [Concomitant]
     Indication: PAIN
     Dosage: DOSE OF 112.5 MG / 975 MG A DAY
     Route: 048
     Dates: start: 20110228
  10. PREDNISONE [Concomitant]
     Indication: PROSTATE CANCER METASTATIC
     Dates: start: 20110203

REACTIONS (1)
  - Muscular weakness [Recovering/Resolving]
